FAERS Safety Report 8498285-8 (Version None)
Quarter: 2012Q3

REPORT INFORMATION
  Report Type: 
  Country: None (occurrence: None)
  Receive Date: 20120709
  Receipt Date: 20120621
  Transmission Date: 20120928
  Serious: No
  Sender: FDA-Public Use
  Company Number: US-AMGEN-USASP2012038601

PATIENT
  Age: 53 Year
  Sex: Female

DRUGS (7)
  1. PRAVACHOL [Concomitant]
     Dosage: UNK
  2. CARDIZEM LA [Concomitant]
     Dosage: UNK
  3. AMEVIVE [Concomitant]
     Dosage: UNK
  4. ENBREL [Suspect]
     Indication: PSORIASIS
     Dosage: 50 MG, QWK
     Dates: start: 20120401
  5. COZAAR [Concomitant]
     Dosage: UNK
  6. GLUCOSAMINE/CHONDROITIN            /01639101/ [Concomitant]
     Dosage: UNK
  7. CINNAMON                           /01647501/ [Concomitant]
     Dosage: UNK

REACTIONS (1)
  - SKIN FISSURES [None]
